FAERS Safety Report 9934521 (Version 3)
Quarter: 2014Q1

REPORT INFORMATION
  Report Type: Spontaneous
  Country: JP (occurrence: JP)
  Receive Date: 20140228
  Receipt Date: 20140313
  Transmission Date: 20141002
  Serious: Yes (Other)
  Sender: FDA-Public Use
  Company Number: PHHY2014JP024206

PATIENT
  Age: 60 Year
  Sex: Female

DRUGS (7)
  1. DEXAMETHASONE [Suspect]
     Indication: PLASMA CELL MYELOMA
     Route: 048
     Dates: start: 201111
  2. ZOLEDRONIC ACID [Suspect]
     Indication: PLASMA CELL MYELOMA
  3. ALLOPURINOL [Suspect]
     Route: 048
  4. ITRACONAZOLE [Suspect]
     Route: 048
  5. RABEPRAZOLE [Suspect]
     Route: 048
  6. TOSUFLOXACIN TOSILATE [Suspect]
     Route: 048
  7. LENALIDOMIDE [Suspect]
     Indication: PLASMA CELL MYELOMA
     Route: 048
     Dates: start: 201111

REACTIONS (7)
  - Acute febrile neutrophilic dermatosis [Recovering/Resolving]
  - Pyrexia [Recovering/Resolving]
  - Erythema [Recovering/Resolving]
  - Skin plaque [Recovering/Resolving]
  - Rash [Recovering/Resolving]
  - Feeling hot [Recovering/Resolving]
  - Drug eruption [Recovering/Resolving]
